FAERS Safety Report 14742651 (Version 1)
Quarter: 2018Q2

REPORT INFORMATION
  Report Type: Spontaneous
  Country: US (occurrence: US)
  Receive Date: 20180405
  Receipt Date: 20180405
  Transmission Date: 20180711
  Serious: Yes (Hospitalization)
  Sender: FDA-Public Use
  Company Number: None

PATIENT
  Age: 66 Year
  Sex: Female
  Weight: 68.4 kg

DRUGS (18)
  1. ASPIRIN. [Concomitant]
     Active Substance: ASPIRIN
  2. ISOSORBIDE. [Concomitant]
     Active Substance: ISOSORBIDE
  3. DOVONOX [Concomitant]
  4. HYDROCHLOROTHIAZIDE. [Concomitant]
     Active Substance: HYDROCHLOROTHIAZIDE
  5. TIZANIDINE. [Concomitant]
     Active Substance: TIZANIDINE
  6. VORAPAXAR [Suspect]
     Active Substance: VORAPAXAR
     Indication: CORONARY ARTERY DISEASE
     Route: 048
     Dates: start: 20180219, end: 20180405
  7. PREGABALIN. [Concomitant]
     Active Substance: PREGABALIN
  8. DIPHENHYDRAMINE. [Concomitant]
     Active Substance: DIPHENHYDRAMINE
  9. PANTOPRAZOLE [Concomitant]
     Active Substance: PANTOPRAZOLE
  10. CARMOL [Concomitant]
  11. SPIRONOLACTONE. [Concomitant]
     Active Substance: SPIRONOLACTONE
  12. ALBUTEROL. [Concomitant]
     Active Substance: ALBUTEROL
  13. ATORVASTATIN [Concomitant]
     Active Substance: ATORVASTATIN
  14. TICAGRELOR. [Concomitant]
     Active Substance: TICAGRELOR
  15. AMLODIPINE [Concomitant]
     Active Substance: AMLODIPINE BESYLATE
  16. CARVEDILOL. [Concomitant]
     Active Substance: CARVEDILOL
  17. HYDROCODONE [Concomitant]
     Active Substance: HYDROCODONE
  18. METFORMIN [Concomitant]
     Active Substance: METFORMIN HYDROCHLORIDE

REACTIONS (6)
  - Influenza [None]
  - Nausea [None]
  - Dyspnoea [None]
  - Fatigue [None]
  - Pain [None]
  - Vomiting [None]

NARRATIVE: CASE EVENT DATE: 20180326
